FAERS Safety Report 8776650 (Version 1)
Quarter: 2012Q4

REPORT INFORMATION
  Report Type: 
  Country: ZA (occurrence: ZA)
  Receive Date: 20120910
  Receipt Date: 20120910
  Transmission Date: 20130627
  Serious: Yes (Death, Hospitalization)
  Sender: FDA-Public Use
  Company Number: PHHY2011ZA117201

PATIENT
  Sex: Female

DRUGS (1)
  1. GLIVEC [Suspect]
     Dates: start: 20090331

REACTIONS (6)
  - Death [Fatal]
  - Neoplasm progression [Unknown]
  - Malignant neoplasm progression [Unknown]
  - Vomiting [Unknown]
  - Diarrhoea [Unknown]
  - Dehydration [Unknown]
